FAERS Safety Report 25857280 (Version 1)
Quarter: 2025Q3

REPORT INFORMATION
  Report Type: Spontaneous
  Country: EU (occurrence: EU)
  Receive Date: 20250929
  Receipt Date: 20250929
  Transmission Date: 20251020
  Serious: Yes (Other)
  Sender: SANDOZ
  Company Number: None

PATIENT
  Age: 61 Year
  Sex: Female
  Weight: 42 kg

DRUGS (4)
  1. ATRIANCE [Suspect]
     Active Substance: NELARABINE
     Indication: Non-Hodgkin^s lymphoma
     Route: 042
     Dates: start: 20230427, end: 20230818
  2. ATRIANCE [Suspect]
     Active Substance: NELARABINE
     Route: 042
     Dates: start: 20240109, end: 20240311
  3. ONCASPAR [Suspect]
     Active Substance: PEGASPARGASE
     Indication: Non-Hodgkin^s lymphoma
     Route: 042
     Dates: start: 20240109
  4. VENETOCLAX [Suspect]
     Active Substance: VENETOCLAX
     Indication: Non-Hodgkin^s lymphoma
     Route: 048
     Dates: start: 20240109

REACTIONS (1)
  - Acute motor-sensory axonal neuropathy [Not Recovered/Not Resolved]

NARRATIVE: CASE EVENT DATE: 20240801
